FAERS Safety Report 16815019 (Version 1)
Quarter: 2019Q3

REPORT INFORMATION
  Report Type: Spontaneous
  Country: US (occurrence: US)
  Receive Date: 20190917
  Receipt Date: 20190917
  Transmission Date: 20191005
  Serious: No
  Sender: FDA-Public Use
  Company Number: US-ALLERGAN-1925830US

PATIENT
  Age: 63 Year
  Sex: Male

DRUGS (5)
  1. ARTHRITIS MEDICATION NAME NOT SPECIFIED [Concomitant]
     Indication: ARTHRITIS
  2. PROBIOTIC [Concomitant]
     Active Substance: PROBIOTICS NOS
     Indication: FAECES SOFT
     Dosage: UNK
     Route: 048
     Dates: start: 20190619
  3. LINZESS [Suspect]
     Active Substance: LINACLOTIDE
     Indication: CONSTIPATION
     Dosage: 145 ?G, QD
     Route: 048
     Dates: start: 201905
  4. DIALYSIS [Concomitant]
     Active Substance: UNSPECIFIED INGREDIENT
     Indication: RENAL FAILURE
  5. EYE MEDS NAME NOT PROVIDED [Concomitant]
     Indication: EYE DISORDER

REACTIONS (3)
  - Abdominal distension [Recovering/Resolving]
  - Constipation [Not Recovered/Not Resolved]
  - Diarrhoea [Recovered/Resolved]

NARRATIVE: CASE EVENT DATE: 2019
